FAERS Safety Report 23445016 (Version 2)
Quarter: 2024Q1

REPORT INFORMATION
  Report Type: Spontaneous
  Country: US (occurrence: US)
  Receive Date: 20240125
  Receipt Date: 20240221
  Transmission Date: 20240409
  Serious: Yes (Other)
  Sender: FDA-Public Use
  Company Number: US-BRISTOL-MYERS SQUIBB COMPANY-2024-012912

PATIENT
  Age: 67 Year
  Sex: Female

DRUGS (1)
  1. POMALYST [Suspect]
     Active Substance: POMALIDOMIDE
     Indication: Plasma cell myeloma
     Dosage: QD
     Route: 048

REACTIONS (8)
  - Amnesia [Unknown]
  - Blindness [Unknown]
  - Headache [Unknown]
  - Peripheral swelling [Unknown]
  - Muscle spasms [Unknown]
  - Palpitations [Unknown]
  - Back pain [Unknown]
  - Constipation [Unknown]
